FAERS Safety Report 4881406-3 (Version None)
Quarter: 2005Q4

REPORT INFORMATION
  Report Type: 
  Country: None (occurrence: None)
  Receive Date: 20051201
  Receipt Date: 20050729
  Transmission Date: 20060501
  Serious: No
  Sender: FDA-Public Use
  Company Number: 2005PV000690

PATIENT
  Age: 67 Year
  Sex: Female

DRUGS (18)
  1. BYETTA [Suspect]
     Indication: DIABETES MELLITUS NON-INSULIN-DEPENDENT
     Dosage: SEE IMAGE
     Route: 058
     Dates: start: 20050715, end: 20050815
  2. BYETTA [Suspect]
     Indication: DIABETES MELLITUS NON-INSULIN-DEPENDENT
     Dosage: SEE IMAGE
     Route: 058
     Dates: start: 20050815
  3. LIPITOR [Concomitant]
  4. GLUCOTROL XL [Concomitant]
  5. ACTOS [Concomitant]
  6. GLUCOSAMINE [Concomitant]
  7. INDOMETHACIN [Concomitant]
  8. ISOSORBIDE [Concomitant]
  9. AVAPRO [Concomitant]
  10. HYDROCHLOROTHIAZIDE [Concomitant]
  11. XANAX [Concomitant]
  12. OCUVITE [Concomitant]
  13. NIFEREX [Concomitant]
  14. VITAMIN B-12 [Concomitant]
  15. CALCIUM GLUCONATE [Concomitant]
  16. FIBERCON [Concomitant]
  17. FOSAMAX [Concomitant]
  18. GLUCOPHAGE [Concomitant]

REACTIONS (5)
  - BLOOD GLUCOSE DECREASED [None]
  - DIZZINESS [None]
  - FEELING ABNORMAL [None]
  - HEART RATE INCREASED [None]
  - NAUSEA [None]
